FAERS Safety Report 7658250-7 (Version None)
Quarter: 2011Q3

REPORT INFORMATION
  Report Type: 
  Country: None (occurrence: None)
  Receive Date: 20110803
  Receipt Date: 20110803
  Transmission Date: 20111222
  Serious: No
  Sender: FDA-Public Use
  Company Number: None

PATIENT
  Sex: Female
  Weight: 60.3284 kg

DRUGS (1)
  1. DIVALPROEX SODIUM [Suspect]
     Indication: CONVULSION
     Dosage: PO 2 TAB 5 DAY 3 TAB 2 DAY
     Route: 048

REACTIONS (3)
  - CONVULSION [None]
  - TOOTH DISORDER [None]
  - PRODUCT SUBSTITUTION ISSUE [None]
